FAERS Safety Report 17054050 (Version 1)
Quarter: 2019Q4

REPORT INFORMATION
  Report Type: Spontaneous
  Country: IN (occurrence: IN)
  Receive Date: 20191120
  Receipt Date: 20191120
  Transmission Date: 20200122
  Serious: Yes (Other)
  Sender: FDA-Public Use
  Company Number: IN-PFIZER INC-2019318196

PATIENT
  Sex: Female

DRUGS (3)
  1. CALCIUM [Concomitant]
     Active Substance: CALCIUM
     Dosage: 500 MG, 2X/DAY
  2. CALCITRIOL. [Concomitant]
     Active Substance: CALCITRIOL
     Dosage: ONCE A MONTH
  3. AROMASIN [Suspect]
     Active Substance: EXEMESTANE
     Indication: BREAST CANCER
     Dosage: 25 MG, ONCE A DAY
     Route: 048
     Dates: start: 20190705

REACTIONS (4)
  - Cholelithiasis [Unknown]
  - Diabetes mellitus [Unknown]
  - Lipids abnormal [Unknown]
  - Hepatic steatosis [Unknown]
